FAERS Safety Report 6083005-7 (Version None)
Quarter: 2009Q1

REPORT INFORMATION
  Report Type: 
  Country: None (occurrence: None)
  Receive Date: 20090218
  Receipt Date: 20090211
  Transmission Date: 20090719
  Serious: Yes (Other)
  Sender: FDA-Public Use
  Company Number: US-GENENTECH-275863

PATIENT
  Sex: Female
  Weight: 26.31 kg

DRUGS (1)
  1. SOMATROPIN [Suspect]
     Indication: GROWTH RETARDATION
     Dosage: 1.5 MG, QD
     Route: 058
     Dates: start: 20070929

REACTIONS (1)
  - OSTEOCHONDROMA [None]
